FAERS Safety Report 13987860 (Version 1)
Quarter: 2017Q3

REPORT INFORMATION
  Report Type: Spontaneous
  Country: BR (occurrence: BR)
  Receive Date: 20170919
  Receipt Date: 20170919
  Transmission Date: 20171128
  Serious: Yes (Hospitalization, Other)
  Sender: FDA-Public Use
  Company Number: BR-ELI_LILLY_AND_COMPANY-BR201708010614

PATIENT
  Sex: Female

DRUGS (1)
  1. CYMBALTA [Suspect]
     Active Substance: DULOXETINE HYDROCHLORIDE
     Indication: PRODUCT USED FOR UNKNOWN INDICATION
     Dosage: UNK, UNKNOWN
     Route: 065

REACTIONS (12)
  - Carotid artery thrombosis [Recovered/Resolved]
  - Glucose tolerance impaired [Unknown]
  - Depression [Unknown]
  - Vomiting [Unknown]
  - Arrhythmia [Unknown]
  - Pain [Unknown]
  - Haemorrhage [Unknown]
  - Cardiac failure [Unknown]
  - Hypertension [Unknown]
  - Wound [Unknown]
  - Abdominal pain [Unknown]
  - Diabetes mellitus [Unknown]

NARRATIVE: CASE EVENT DATE: 2015
